FAERS Safety Report 11610209 (Version 1)
Quarter: 2015Q4

REPORT INFORMATION
  Report Type: Spontaneous
  Country: IT (occurrence: IT)
  Receive Date: 20151008
  Receipt Date: 20151008
  Transmission Date: 20160304
  Serious: Yes (Hospitalization)
  Sender: FDA-Public Use
  Company Number: IT-HOSPIRA-3025724

PATIENT
  Age: 59 Year
  Sex: Male
  Weight: 45 kg

DRUGS (3)
  1. CARBOPLATIN. [Suspect]
     Active Substance: CARBOPLATIN
     Indication: LUNG ADENOCARCINOMA METASTATIC
     Route: 042
     Dates: start: 20150914, end: 20150914
  2. AVASTIN [Suspect]
     Active Substance: BEVACIZUMAB
     Indication: LUNG ADENOCARCINOMA METASTATIC
     Route: 042
     Dates: start: 20150914, end: 20150914
  3. BETAXOLOL. [Suspect]
     Active Substance: BETAXOLOL
     Indication: LUNG ADENOCARCINOMA METASTATIC
     Route: 042
     Dates: start: 20150914, end: 20150914

REACTIONS (2)
  - Diarrhoea [Recovered/Resolved]
  - Electrolyte imbalance [Recovered/Resolved]

NARRATIVE: CASE EVENT DATE: 20150914
